FAERS Safety Report 21937443 (Version 4)
Quarter: 2023Q4

REPORT INFORMATION
  Report Type: Report from Study
  Country: US (occurrence: US)
  Receive Date: 20230201
  Receipt Date: 20231025
  Transmission Date: 20240109
  Serious: No
  Sender: FDA-Public Use
  Company Number: US-IDORSIA-003204-2023-US

PATIENT
  Age: 84 Year
  Sex: Male

DRUGS (14)
  1. QUVIVIQ [Suspect]
     Active Substance: DARIDOREXANT
     Indication: Insomnia
     Dosage: 50 MG, QD
     Route: 048
     Dates: start: 20230118
  2. QUVIVIQ [Suspect]
     Active Substance: DARIDOREXANT
     Dosage: 75 MG, QD
     Route: 048
  3. QUVIVIQ [Suspect]
     Active Substance: DARIDOREXANT
     Dosage: HALF OF 50 MG
     Route: 048
  4. QUVIVIQ [Suspect]
     Active Substance: DARIDOREXANT
     Dosage: 25 MG, QD
     Route: 048
     Dates: start: 202303
  5. TRAZODONE [Concomitant]
     Active Substance: TRAZODONE HYDROCHLORIDE
     Dosage: 150 MG, QD
     Route: 048
  6. APIXABAN [Concomitant]
     Active Substance: APIXABAN
     Dosage: 2.5 MG
     Route: 048
  7. ATORVASTATIN [Concomitant]
     Active Substance: ATORVASTATIN
     Dosage: 60 MG, QD
     Route: 048
  8. BUPROPION [Concomitant]
     Active Substance: BUPROPION
     Dosage: 100 MG, QD
     Route: 048
  9. DONEPEZIL [Concomitant]
     Active Substance: DONEPEZIL
     Dosage: 5 MG, QD
     Route: 048
  10. ETODOLAC [Concomitant]
     Active Substance: ETODOLAC
     Dosage: 400 MG, BID
     Route: 048
  11. METFORMIN\SITAGLIPTIN [Concomitant]
     Active Substance: METFORMIN\SITAGLIPTIN
     Dosage: 50/100MG, QD
     Route: 048
  12. MINERALS\VITAMINS [Concomitant]
     Active Substance: MINERALS\VITAMINS
     Dosage: 1 DOSAGE FORM, QD
     Route: 048
  13. PROPRANOLOL [Concomitant]
     Active Substance: PROPRANOLOL HYDROCHLORIDE
     Dosage: 40 MG, QD
     Route: 048
  14. SILDENAFIL [Concomitant]
     Active Substance: SILDENAFIL
     Dosage: 100 MG
     Route: 048

REACTIONS (8)
  - Nightmare [Recovered/Resolved]
  - Vomiting [Recovered/Resolved]
  - Abdominal discomfort [Recovered/Resolved]
  - Abnormal dreams [Unknown]
  - Intentional overdose [Recovered/Resolved]
  - Insomnia [Recovering/Resolving]
  - Wrong technique in product usage process [Unknown]
  - Drug ineffective [Not Recovered/Not Resolved]

NARRATIVE: CASE EVENT DATE: 20230119
